FAERS Safety Report 11029707 (Version 1)
Quarter: 2015Q2

REPORT INFORMATION
  Report Type: Spontaneous
  Country: US (occurrence: None)
  Receive Date: 20150413
  Receipt Date: 20150413
  Transmission Date: 20150821
  Serious: No
  Sender: FDA-Public Use
  Company Number: None

PATIENT
  Age: 59 Year
  Sex: Female
  Weight: 61.24 kg

DRUGS (7)
  1. VALIUM [Concomitant]
     Active Substance: DIAZEPAM
  2. DULOXETINE [Suspect]
     Active Substance: DULOXETINE
     Indication: NEURALGIA
     Dosage: 1 CAPSULE
     Route: 048
  3. TYLENOL #4 [Concomitant]
  4. MULTIV VITAMIN [Concomitant]
  5. VITAMIN D [Concomitant]
     Active Substance: CHOLECALCIFEROL
  6. BACLOFEN. [Concomitant]
     Active Substance: BACLOFEN
  7. VITAMIN C [Concomitant]
     Active Substance: ASCORBIC ACID

REACTIONS (16)
  - Abdominal pain upper [None]
  - Decreased appetite [None]
  - Gait disturbance [None]
  - Nausea [None]
  - Condition aggravated [None]
  - Abdominal discomfort [None]
  - Diarrhoea [None]
  - Hyperhidrosis [None]
  - Musculoskeletal stiffness [None]
  - Nuchal rigidity [None]
  - Dizziness [None]
  - Dysgeusia [None]
  - Muscle rigidity [None]
  - Muscular weakness [None]
  - Blister [None]
  - Neuralgia [None]
